FAERS Safety Report 5852914-3 (Version None)
Quarter: 2008Q3

REPORT INFORMATION
  Report Type: 
  Country: None (occurrence: None)
  Receive Date: 20080821
  Receipt Date: 20080813
  Transmission Date: 20090109
  Serious: Yes (Hospitalization)
  Sender: FDA-Public Use
  Company Number: FR-ASTRAZENECA-2008CG01214

PATIENT
  Age: 30456 Day
  Sex: Male

DRUGS (6)
  1. NEXIUM [Suspect]
     Route: 048
  2. AVLOCARDYL [Suspect]
     Route: 048
  3. FRAXIPARINE [Suspect]
     Indication: DIALYSIS
     Dosage: 3800 IU
     Route: 013
  4. LASIX [Suspect]
     Route: 048
  5. HEXAQUINE [Suspect]
     Route: 048
  6. OROCAL [Suspect]
     Route: 048

REACTIONS (1)
  - INTRAVASCULAR HAEMOLYSIS [None]
